FAERS Safety Report 11556902 (Version 1)
Quarter: 2015Q3

REPORT INFORMATION
  Report Type: Spontaneous
  Country: FR (occurrence: FR)
  Receive Date: 20150925
  Receipt Date: 20150925
  Transmission Date: 20151125
  Serious: Yes (Hospitalization)
  Sender: FDA-Public Use
  Company Number: FR-ABBVIE-15P-056-1469908-00

PATIENT
  Age: 5 Year

DRUGS (8)
  1. MICROPAKINE [Suspect]
     Active Substance: VALPROIC ACID
     Indication: SEVERE MYOCLONIC EPILEPSY OF INFANCY
     Route: 048
     Dates: start: 2014
  2. MICROPAKINE [Suspect]
     Active Substance: VALPROIC ACID
     Route: 048
     Dates: start: 201504
  3. CIRCADIN [Concomitant]
     Active Substance: MELATONIN
     Indication: PRODUCT USED FOR UNKNOWN INDICATION
     Dates: start: 201501, end: 201508
  4. MICROPAKINE [Suspect]
     Active Substance: VALPROIC ACID
     Route: 048
  5. DIACOMIT [Suspect]
     Active Substance: STIRIPENTOL
     Indication: SEVERE MYOCLONIC EPILEPSY OF INFANCY
     Route: 048
     Dates: start: 2013
  6. DIACOMIT [Suspect]
     Active Substance: STIRIPENTOL
     Route: 048
     Dates: start: 201506
  7. DIACOMIT [Suspect]
     Active Substance: STIRIPENTOL
     Route: 048
  8. URBANYL [Concomitant]
     Active Substance: CLOBAZAM
     Indication: PRODUCT USED FOR UNKNOWN INDICATION
     Dates: start: 2014

REACTIONS (6)
  - Cerebellar syndrome [Recovering/Resolving]
  - Liver injury [Recovering/Resolving]
  - Thrombocytopenia [Recovering/Resolving]
  - Hyperammonaemia [Recovering/Resolving]
  - Somnolence [Recovering/Resolving]
  - Neutropenia [Recovering/Resolving]

NARRATIVE: CASE EVENT DATE: 201507
